FAERS Safety Report 24087847 (Version 2)
Quarter: 2024Q3

REPORT INFORMATION
  Report Type: Spontaneous
  Country: JP (occurrence: JP)
  Receive Date: 20240715
  Receipt Date: 20240828
  Transmission Date: 20241017
  Serious: Yes (Other)
  Sender: AMGEN
  Company Number: JP-ONO-2024JP014438

PATIENT
  Age: 8 Decade

DRUGS (1)
  1. KYPROLIS [Suspect]
     Active Substance: CARFILZOMIB
     Indication: Plasma cell myeloma
     Dosage: 70 MILLIGRAM/SQ. METER (70 MG/M2)
     Route: 042
     Dates: start: 202406

REACTIONS (1)
  - Electrocardiogram QT prolonged [Recovered/Resolved]
